FAERS Safety Report 6796268-7 (Version None)
Quarter: 2010Q2

REPORT INFORMATION
  Report Type: 
  Country: None (occurrence: None)
  Receive Date: 20100625
  Receipt Date: 20100617
  Transmission Date: 20101027
  Serious: Yes (Hospitalization)
  Sender: FDA-Public Use
  Company Number: FR-MERCK-1006FRA00085

PATIENT
  Age: 69 Year
  Sex: Male

DRUGS (4)
  1. JANUVIA [Suspect]
     Indication: TYPE 2 DIABETES MELLITUS
     Route: 048
     Dates: start: 20090501, end: 20090801
  2. JANUVIA [Suspect]
     Route: 048
     Dates: start: 20091201
  3. METFORMIN [Concomitant]
     Indication: TYPE 2 DIABETES MELLITUS
     Route: 048
  4. IRBESARTAN [Concomitant]
     Route: 048

REACTIONS (4)
  - NEPHROLITHIASIS [None]
  - PROSTATIC SPECIFIC ANTIGEN INCREASED [None]
  - RENAL COLIC [None]
  - SEPSIS [None]
